FAERS Safety Report 7830132-7 (Version None)
Quarter: 2011Q4

REPORT INFORMATION
  Report Type: 
  Country: None (occurrence: None)
  Receive Date: 20111019
  Receipt Date: 20111004
  Transmission Date: 20120403
  Serious: Yes (Death)
  Sender: FDA-Public Use
  Company Number: FK201102208

PATIENT
  Age: 98 Year
  Sex: Female

DRUGS (1)
  1. METHOTREXATE [Suspect]
     Indication: PEMPHIGOID
     Dosage: 7.5 MG, 1 IN 1 WK

REACTIONS (4)
  - DECREASED APPETITE [None]
  - MUTISM [None]
  - HYPERSOMNIA [None]
  - FAILURE TO THRIVE [None]
